FAERS Safety Report 8123557-6 (Version None)
Quarter: 2012Q1

REPORT INFORMATION
  Report Type: 
  Country: None (occurrence: None)
  Receive Date: 20120208
  Receipt Date: 20120201
  Transmission Date: 20120608
  Serious: Yes (Other)
  Sender: FDA-Public Use
  Company Number: PHHY2012BR004687

PATIENT
  Age: 46 Year
  Sex: Female

DRUGS (5)
  1. BETAHISTINE DIHYDROCHLORIDE [Suspect]
     Indication: CEREBROVASCULAR DISORDER
     Dosage: 1 DF, DAILY
     Route: 048
  2. TRILEPTAL [Suspect]
     Indication: CEREBROVASCULAR DISORDER
     Dosage: 300 MG, BID
     Route: 048
  3. ANTIDEPRESSANTS [Concomitant]
     Dosage: UNK UKN, UNK
  4. HYDROCHLOROTHIAZIDE [Concomitant]
     Indication: HYPERTENSION
     Dosage: 1 DF, DAILY
     Route: 048
  5. ENALAPRIL MALEATE [Concomitant]
     Indication: HYPERTENSION
     Dosage: 1 DF, DAILY

REACTIONS (6)
  - SINUSITIS [None]
  - FEELING ABNORMAL [None]
  - GAIT DISTURBANCE [None]
  - BRAIN HYPOXIA [None]
  - NERVOUS SYSTEM DISORDER [None]
  - CEREBROVASCULAR INSUFFICIENCY [None]
